FAERS Safety Report 5587701-7 (Version None)
Quarter: 2007Q4

REPORT INFORMATION
  Report Type: 
  Country: None (occurrence: None)
  Receive Date: 20071207
  Receipt Date: 20071204
  Transmission Date: 20080405
  Serious: Yes (Hospitalization, Other)
  Sender: FDA-Public Use
  Company Number: 07-472

PATIENT
  Age: 53 Year
  Sex: Male
  Weight: 76.2043 kg

DRUGS (4)
  1. ALEVE [Suspect]
     Indication: DEPRESSION
     Dosage: 660 MG, DAILY, ORAL
     Route: 048
     Dates: start: 20070801
  2. ALEVE [Suspect]
     Indication: HEADACHE
     Dosage: 660 MG, DAILY, ORAL
     Route: 048
     Dates: start: 20070801
  3. ALEVE [Suspect]
     Indication: STRESS
     Dosage: 660 MG, DAILY, ORAL
     Route: 048
     Dates: start: 20070801
  4. HIGH BLOOD PRESSURE MEDICATION [Concomitant]

REACTIONS (7)
  - ARTHRALGIA [None]
  - ARTHRITIS [None]
  - DIZZINESS [None]
  - GASTRIC HAEMORRHAGE [None]
  - NASOPHARYNGITIS [None]
  - SOMNAMBULISM [None]
  - SOMNOLENCE [None]
